FAERS Safety Report 7460734-1 (Version None)
Quarter: 2011Q2

REPORT INFORMATION
  Report Type: 
  Country: None (occurrence: None)
  Receive Date: 20110505
  Receipt Date: 20110502
  Transmission Date: 20111010
  Serious: Yes (Other)
  Sender: FDA-Public Use
  Company Number: US-PFIZER INC-2011023024

PATIENT
  Sex: Female

DRUGS (6)
  1. CHANTIX [Suspect]
     Indication: SMOKING CESSATION THERAPY
     Dosage: STARTER MONTHLY PACK
     Dates: start: 20070701, end: 20090511
  2. MS CONTIN [Concomitant]
     Indication: BACK PAIN
     Dosage: UNK
     Dates: start: 20070101
  3. FLUOXETINE [Concomitant]
     Indication: DEPRESSION
     Dosage: UNK
     Dates: start: 20070101
  4. WELLBUTRIN [Concomitant]
     Indication: SMOKING CESSATION THERAPY
     Dosage: UNK
     Dates: start: 20070101, end: 20110101
  5. PREDNISONE [Concomitant]
     Indication: ALOPECIA
     Dosage: UNK
     Dates: start: 20070101
  6. RITALIN [Concomitant]
     Indication: DEPRESSION
     Dosage: UNK
     Dates: start: 20040101

REACTIONS (6)
  - NIGHTMARE [None]
  - ANXIETY [None]
  - BACK PAIN [None]
  - DEPRESSION [None]
  - FALL [None]
  - LOSS OF CONSCIOUSNESS [None]
